FAERS Safety Report 6693259-1 (Version None)
Quarter: 2010Q2

REPORT INFORMATION
  Report Type: 
  Country: None (occurrence: None)
  Receive Date: 20100422
  Receipt Date: 20100414
  Transmission Date: 20101027
  Serious: Yes (Death, Life-Threatening)
  Sender: FDA-Public Use
  Company Number: DE-MERCK-1001DEU00109

PATIENT
  Age: 54 Year
  Sex: Female
  Weight: 61 kg

DRUGS (2)
  1. MAXALT [Suspect]
     Indication: MIGRAINE
     Route: 048
     Dates: start: 20050712, end: 20091008
  2. FORMOTEROL FUMARATE [Suspect]
     Indication: ASTHMA
     Route: 055
     Dates: start: 20070327, end: 20091008

REACTIONS (7)
  - ANGIOEDEMA [None]
  - ARRHYTHMIA [None]
  - ARTERIOSCLEROSIS [None]
  - CARDIAC FAILURE ACUTE [None]
  - MALAISE [None]
  - TRIGEMINAL NEURALGIA [None]
  - VESTIBULAR NEURONITIS [None]
